FAERS Safety Report 8622558-9 (Version None)
Quarter: 2012Q3

REPORT INFORMATION
  Report Type: 
  Country: None (occurrence: None)
  Receive Date: 20120827
  Receipt Date: 20120820
  Transmission Date: 20120928
  Serious: No
  Sender: FDA-Public Use
  Company Number: US-B.I. PHARMACEUTICALS,INC./RIDGEFIELD-2012-BP-20253BP

PATIENT
  Sex: Female

DRUGS (6)
  1. FLUTICASONE PROPIONATE [Concomitant]
     Indication: BRONCHITIS CHRONIC
     Dosage: 500 MCG
     Route: 055
  2. LORTAB [Concomitant]
     Indication: MUSCULOSKELETAL DISCOMFORT
     Route: 048
  3. SOMA [Concomitant]
     Indication: MUSCULOSKELETAL DISCOMFORT
     Dosage: 1400 MG
     Route: 048
  4. MS CONTIN [Concomitant]
     Indication: MUSCULOSKELETAL DISCOMFORT
     Dosage: 200 MG
     Route: 048
  5. CYMBALTA [Concomitant]
     Indication: DEPRESSION
     Dosage: 60 MG
     Route: 048
  6. SPIRIVA [Suspect]
     Indication: BRONCHITIS CHRONIC
     Dosage: 18 MCG
     Route: 055
     Dates: start: 20120810

REACTIONS (2)
  - DRY MOUTH [None]
  - LEUKOPLAKIA ORAL [None]
